FAERS Safety Report 8332662-0 (Version None)
Quarter: 2012Q2

REPORT INFORMATION
  Report Type: 
  Country: None (occurrence: None)
  Receive Date: 20120503
  Receipt Date: 20120418
  Transmission Date: 20120825
  Serious: Yes (Hospitalization, Other)
  Sender: FDA-Public Use
  Company Number: CN-JNJFOC-20111012366

PATIENT
  Sex: Female
  Weight: 13 kg

DRUGS (3)
  1. TOPAMAX [Suspect]
     Indication: EPILEPSY
     Route: 048
     Dates: start: 20111014
  2. GINKGO BILOBA LEAF EXTRACT [Concomitant]
     Route: 065
  3. TOPAMAX [Suspect]
     Dosage: TOOK 0.5 TABLET
     Route: 048
     Dates: start: 20110808, end: 20110811

REACTIONS (6)
  - TREMOR [None]
  - RASH [None]
  - ALTERED STATE OF CONSCIOUSNESS [None]
  - CONVULSION [None]
  - DRUG PRESCRIBING ERROR [None]
  - ERYTHEMA [None]
